FAERS Safety Report 6638651-6 (Version None)
Quarter: 2010Q1

REPORT INFORMATION
  Report Type: 
  Country: None (occurrence: None)
  Receive Date: 20100316
  Receipt Date: 20100316
  Transmission Date: 20100710
  Serious: Yes (Hospitalization)
  Sender: FDA-Public Use
  Company Number: None

PATIENT
  Sex: Female
  Weight: 69.09 kg

DRUGS (2)
  1. CARBOPLATIN [Suspect]
     Dosage: 647 MG
     Dates: end: 20100222
  2. DOCETAXEL [Suspect]
     Dosage: 132 MG
     Dates: end: 20100222

REACTIONS (8)
  - CATHETER SITE CELLULITIS [None]
  - DECREASED APPETITE [None]
  - DERMATITIS CONTACT [None]
  - DEVICE RELATED INFECTION [None]
  - DYSURIA [None]
  - GASTROINTESTINAL DISORDER [None]
  - INFUSION SITE EXTRAVASATION [None]
  - MEDICAL DEVICE COMPLICATION [None]
